FAERS Safety Report 9286691 (Version 1)
Quarter: 2013Q2

REPORT INFORMATION
  Report Type: Report from Study
  Country: US (occurrence: US)
  Receive Date: 20130513
  Receipt Date: 20130513
  Transmission Date: 20140414
  Serious: Yes (Other)
  Sender: FDA-Public Use
  Company Number: US-BAYER-2013-057327

PATIENT
  Age: 13 Year
  Sex: 0

DRUGS (2)
  1. IBUPROFEN [Suspect]
  2. ACETYLSALICYLIC ACID [Suspect]

REACTIONS (2)
  - Stevens-Johnson syndrome [None]
  - Toxic epidermal necrolysis [None]
